FAERS Safety Report 10017265 (Version 2)
Quarter: 2014Q1

REPORT INFORMATION
  Report Type: Spontaneous
  Country: US (occurrence: US)
  Receive Date: 20140318
  Receipt Date: 20140326
  Transmission Date: 20141002
  Serious: Yes (Other)
  Sender: FDA-Public Use
  Company Number: US-THROMBOGENICS INC.-JET-2014-106

PATIENT
  Age: 55 Year
  Sex: Female

DRUGS (1)
  1. JETREA [Suspect]
     Indication: VITREOUS ADHESIONS
     Dosage: 0.125 MG, ONE TIME DOSE
     Route: 031
     Dates: start: 20140225, end: 20140225

REACTIONS (7)
  - Blindness transient [Not Recovered/Not Resolved]
  - Visual acuity reduced [Unknown]
  - Headache [Unknown]
  - Visual impairment [Unknown]
  - Photopsia [Unknown]
  - Pupillary reflex impaired [Unknown]
  - No therapeutic response [Unknown]
